FAERS Safety Report 7535804-X (Version None)
Quarter: 2011Q2

REPORT INFORMATION
  Report Type: 
  Country: None (occurrence: None)
  Receive Date: 20110602
  Receipt Date: 20110517
  Transmission Date: 20111010
  Serious: Yes (Hospitalization)
  Sender: FDA-Public Use
  Company Number: CIP11001271

PATIENT
  Age: 52 Year
  Sex: Female
  Weight: 81.2 kg

DRUGS (4)
  1. INVESTIGATIONAL DRUG [Suspect]
     Indication: COLON CANCER METASTATIC
     Dosage: 150 MG TWICE DAILY, ORAL
     Route: 048
     Dates: start: 20110214, end: 20110311
  2. OXYCODONE HCL [Concomitant]
  3. DOCUSATE SODIUM (DOCUSATE SODIUM) [Concomitant]
  4. MACROBID [Suspect]
     Indication: URINARY TRACT INFECTION
     Dates: start: 20110303, end: 20110310

REACTIONS (16)
  - HYPONATRAEMIA [None]
  - MUSCLE SPASMS [None]
  - INFECTION [None]
  - GAMMA-GLUTAMYLTRANSFERASE INCREASED [None]
  - URINARY TRACT INFECTION [None]
  - OEDEMA PERIPHERAL [None]
  - THROMBOCYTOPENIA [None]
  - ALANINE AMINOTRANSFERASE INCREASED [None]
  - ASPARTATE AMINOTRANSFERASE INCREASED [None]
  - RENAL FAILURE ACUTE [None]
  - CONFUSIONAL STATE [None]
  - RASH MACULO-PAPULAR [None]
  - HYDRONEPHROSIS [None]
  - BLOOD ALKALINE PHOSPHATASE INCREASED [None]
  - THINKING ABNORMAL [None]
  - HYPERBILIRUBINAEMIA [None]
